FAERS Safety Report 7193771-5 (Version None)
Quarter: 2010Q4

REPORT INFORMATION
  Report Type: 
  Country: None (occurrence: None)
  Receive Date: 20101223
  Receipt Date: 20101214
  Transmission Date: 20110411
  Serious: Yes (Life-Threatening, Hospitalization, Disabling)
  Sender: FDA-Public Use
  Company Number: CA-CELGENEUS-028-21880-10092369

PATIENT
  Age: 64 Year
  Sex: Male

DRUGS (1)
  1. REVLIMID [Suspect]
     Route: 048
     Dates: start: 20100701

REACTIONS (3)
  - ADVERSE DRUG REACTION [None]
  - ORGANISING PNEUMONIA [None]
  - PULMONARY FIBROSIS [None]
